FAERS Safety Report 5249192-5 (Version None)
Quarter: 2007Q1

REPORT INFORMATION
  Report Type: 
  Country: None (occurrence: None)
  Receive Date: 20070228
  Receipt Date: 20070221
  Transmission Date: 20070707
  Serious: Yes (Other)
  Sender: FDA-Public Use
  Company Number: US-JNJFOC-20061206773

PATIENT
  Sex: Female
  Weight: 85.73 kg

DRUGS (12)
  1. EXTRA STRENGTH TYLENOL [Suspect]
  2. EXTRA STRENGTH TYLENOL [Suspect]
     Indication: MYALGIA
     Dosage: 1000MG EVERY 4 HOURS AS NEEDED
  3. ASPIRIN [Concomitant]
     Indication: THROMBOSIS PROPHYLAXIS
     Dosage: ^YEARS^
  4. ESTRADIOL [Concomitant]
     Indication: MENOPAUSE
     Dosage: ^YEARS^
  5. SYNTHROID [Concomitant]
     Indication: HYPOTHYROIDISM
     Dosage: ^YEARS^
  6. TOPROL-XL [Concomitant]
     Indication: HYPERTENSION
     Dosage: ^YEARS^
  7. LASIX [Concomitant]
     Indication: FLUID RETENTION
     Dosage: ^YEARS^
  8. VASOTEC [Concomitant]
     Indication: HYPERTENSION
     Dosage: ^YEARS^
  9. NITROSTAT [Concomitant]
     Indication: ANGINA PECTORIS
     Dosage: 0.4 SUBLINGUAL AS NEEDED; ^YEARS^
     Route: 060
  10. LIPITOR [Concomitant]
     Indication: BLOOD CHOLESTEROL INCREASED
     Dosage: ^YEARS^
  11. NEXIUM [Concomitant]
     Indication: OESOPHAGITIS
     Dosage: ^YEARS^
  12. ALPRAZOLAM [Concomitant]
     Indication: NERVOUSNESS
     Dosage: 0.5, ONE AS NEEDED FOR ^NERVES^, ^YEARS^

REACTIONS (2)
  - CHEST PAIN [None]
  - EXPIRED DRUG ADMINISTERED [None]
